FAERS Safety Report 7402159-0 (Version None)
Quarter: 2011Q1

REPORT INFORMATION
  Report Type: 
  Country: None (occurrence: None)
  Receive Date: 20110330
  Receipt Date: 20110322
  Transmission Date: 20110831
  Serious: Yes (Other)
  Sender: FDA-Public Use
  Company Number: GER/UKI/11/0017788

PATIENT
  Age: 50 Year
  Sex: Male

DRUGS (12)
  1. TRAMADOL (TRAMADOL) [Concomitant]
  2. IMINRAMINE (IMIPRAMINE) [Concomitant]
  3. ASPIRIN [Concomitant]
  4. NOVOMIX (INSULIN ASPART) [Concomitant]
  5. ATENOLOL [Concomitant]
  6. ATORVASTATIN (ATORVASTATIN) [Concomitant]
  7. ZOLPIDEM TARTRATE [Concomitant]
  8. AMLODIPINE [Concomitant]
  9. CO-CODAMOL (PANADEINE CO) [Concomitant]
  10. METFORMIN HCL [Concomitant]
  11. VALSARTAN [Concomitant]
  12. OMEPRAZOLE [Suspect]
     Indication: DYSPEPSIA
     Dosage: 20 MG, ORAL
     Route: 048
     Dates: start: 20090924

REACTIONS (1)
  - ERECTILE DYSFUNCTION [None]
